FAERS Safety Report 9319995 (Version 1)
Quarter: 2013Q2

REPORT INFORMATION
  Report Type: Spontaneous
  Country: US (occurrence: US)
  Receive Date: 20130530
  Receipt Date: 20130530
  Transmission Date: 20140414
  Serious: No
  Sender: FDA-Public Use
  Company Number: US-UPSHER-SMITH LABORATORIES, INC.-12002353

PATIENT
  Age: 77 Year
  Sex: Male

DRUGS (4)
  1. POTASSIUM CHLORIDE ER [Suspect]
     Indication: MINERAL SUPPLEMENTATION
     Dosage: 10 MEQ, QD
     Route: 048
     Dates: start: 20120813
  2. TRIAMCINOLONE [Concomitant]
     Dosage: UNK
  3. FLOMAX                             /00889901/ [Concomitant]
     Dosage: UNK
  4. INSULIN [Concomitant]
     Dosage: UNK

REACTIONS (1)
  - Blood glucose increased [Not Recovered/Not Resolved]
